FAERS Safety Report 7301361-6 (Version None)
Quarter: 2011Q1

REPORT INFORMATION
  Report Type: 
  Country: None (occurrence: None)
  Receive Date: 20110218
  Receipt Date: 20110131
  Transmission Date: 20110831
  Serious: Yes (Hospitalization)
  Sender: FDA-Public Use
  Company Number: DK-SANOFI-AVENTIS-2011SA009337

PATIENT
  Sex: Female

DRUGS (3)
  1. HYDROCORTISON [Concomitant]
     Route: 048
     Dates: start: 19921123
  2. MINIRIN [Suspect]
     Route: 055
     Dates: start: 19921123
  3. GENOTROPIN [Suspect]
     Indication: HYPOPITUITARISM
     Route: 065
     Dates: start: 19960910

REACTIONS (3)
  - HYPONATRAEMIA [None]
  - ANAEMIA [None]
  - DISCOMFORT [None]
